FAERS Safety Report 4647253-2 (Version None)
Quarter: 2005Q2

REPORT INFORMATION
  Report Type: 
  Country: None (occurrence: None)
  Receive Date: 20050428
  Receipt Date: 20050418
  Transmission Date: 20051028
  Serious: Yes (Death, Other)
  Sender: FDA-Public Use
  Company Number: TR-BRISTOL-MYERS SQUIBB COMPANY-12937553

PATIENT
  Age: 45 Year
  Sex: Female

DRUGS (5)
  1. CISPLATIN [Suspect]
     Indication: OVARIAN CANCER
  2. CYCLOPHOSPHAMIDE [Suspect]
     Indication: OVARIAN CANCER
  3. DOXORUBICIN HCL [Concomitant]
  4. VINCRISTINE [Concomitant]
  5. PREDNISONE [Concomitant]

REACTIONS (3)
  - HISTIOCYTOSIS HAEMATOPHAGIC [None]
  - NEUTROPENIC SEPSIS [None]
  - NON-HODGKIN'S LYMPHOMA [None]
